FAERS Safety Report 16832983 (Version 2)
Quarter: 2019Q4

REPORT INFORMATION
  Report Type: Spontaneous
  Country: JP (occurrence: JP)
  Receive Date: 20190920
  Receipt Date: 20191230
  Transmission Date: 20200122
  Serious: Yes (Death, Other)
  Sender: FDA-Public Use
  Company Number: JP-KYOWAKIRIN-2019AKK014709

PATIENT

DRUGS (411)
  1. FOSCAVIR [Concomitant]
     Active Substance: FOSCARNET SODIUM
     Dosage: 4.8 G, QD
     Route: 065
     Dates: start: 20160701, end: 20160703
  2. THYMOGLOBULINE [Concomitant]
     Active Substance: LAPINE T-LYMPHOCYTE IMMUNE GLOBULIN
     Dosage: 57 MG, QD
     Route: 065
     Dates: start: 20160628, end: 20160628
  3. THYMOGLOBULINE [Concomitant]
     Active Substance: LAPINE T-LYMPHOCYTE IMMUNE GLOBULIN
     Dosage: 55 MG, QD
     Route: 065
     Dates: start: 20160721, end: 20160722
  4. THYMOGLOBULINE [Concomitant]
     Active Substance: LAPINE T-LYMPHOCYTE IMMUNE GLOBULIN
     Dosage: 110 MG, QD
     Route: 065
     Dates: start: 20160818, end: 20160818
  5. MORPHINE HYDROCHLORIDE TRIHYDRATE [Concomitant]
     Active Substance: MORPHINE HYDROCHLORIDE
     Dosage: 2 ML, QD
     Route: 065
     Dates: start: 20160711, end: 20160711
  6. SOLACET F [Concomitant]
     Active Substance: CALCIUM CHLORIDE\POTASSIUM CHLORIDE\SODIUM ACETATE\SODIUM CHLORIDE
     Dosage: 500 ML, QOD
     Route: 065
     Dates: start: 20160919, end: 20160921
  7. MYSER [DIFLUPREDNATE] [Concomitant]
     Dosage: 3 G
     Route: 061
     Dates: start: 20160724, end: 20160724
  8. ADONA [CARBAZOCHROME SODIUM SULFONATE] [Concomitant]
     Active Substance: CARBAZOCHROME SODIUM SULFONATE
     Dosage: 100 MG, QD
     Route: 065
     Dates: start: 20160729, end: 20160905
  9. DENOSINE [GANCICLOVIR] [Concomitant]
     Active Substance: GANCICLOVIR
     Dosage: 130 MG, QD
     Route: 065
     Dates: start: 20160817, end: 20160831
  10. TRANEXAMIC ACID. [Concomitant]
     Active Substance: TRANEXAMIC ACID
     Dosage: 1000 MG, QD
     Route: 065
     Dates: start: 20160729, end: 20160809
  11. NICARDIPINE HYDROCHLORIDE. [Concomitant]
     Active Substance: NICARDIPINE HYDROCHLORIDE
     Dosage: 50 MG, QD
     Route: 065
     Dates: start: 20160811, end: 20160815
  12. NICARDIPINE HYDROCHLORIDE. [Concomitant]
     Active Substance: NICARDIPINE HYDROCHLORIDE
     Dosage: 50 MG, QD
     Route: 065
     Dates: start: 20160819, end: 20160829
  13. AMBISOME [Concomitant]
     Active Substance: AMPHOTERICIN B
     Dosage: 250 MG, BID
     Route: 065
     Dates: start: 20160920, end: 20160920
  14. ONOACT [Concomitant]
     Active Substance: LANDIOLOL HYDROCHLORIDE
     Dosage: 250 MG, QD
     Route: 065
     Dates: start: 20160919, end: 20160919
  15. ONOACT [Concomitant]
     Active Substance: LANDIOLOL HYDROCHLORIDE
     Dosage: 250 MG, QD
     Route: 065
     Dates: start: 20160921, end: 20160922
  16. FEBURIC [Concomitant]
     Active Substance: FEBUXOSTAT
     Dosage: 80 MG, QD
     Route: 048
     Dates: start: 20160427, end: 20160427
  17. ISOTONIC SODIUM CHLORIDE SOLUTION [Concomitant]
     Active Substance: SODIUM CHLORIDE
     Dosage: UNK UNK, BID
     Route: 065
     Dates: start: 20160506, end: 20160506
  18. ISOTONIC SODIUM CHLORIDE SOLUTION [Concomitant]
     Active Substance: SODIUM CHLORIDE
     Dosage: 100 ML, BID
     Route: 065
     Dates: start: 20160513, end: 20160513
  19. SAXIZON [Concomitant]
     Active Substance: HYDROCORTISONE SODIUM SUCCINATE
     Dosage: 100 MG, QD
     Route: 065
     Dates: start: 20160713, end: 20160715
  20. SAXIZON [Concomitant]
     Active Substance: HYDROCORTISONE SODIUM SUCCINATE
     Dosage: 100 MG, QD
     Route: 065
     Dates: start: 20160825, end: 20160825
  21. SAXIZON [Concomitant]
     Active Substance: HYDROCORTISONE SODIUM SUCCINATE
     Dosage: 100 MG, 1X/WEEK
     Route: 065
     Dates: start: 20160906, end: 20160913
  22. SAXIZON [Concomitant]
     Active Substance: HYDROCORTISONE SODIUM SUCCINATE
     Dosage: 100 MG, QD
     Route: 065
     Dates: start: 20160915, end: 20160915
  23. HEPARIN NA LOCK [Concomitant]
     Active Substance: HEPARIN SODIUM
     Dosage: 10 ML, TID
     Route: 065
     Dates: start: 20160702, end: 20160702
  24. HEPARIN NA LOCK [Concomitant]
     Active Substance: HEPARIN SODIUM
     Dosage: 30 ML, QD
     Route: 065
     Dates: start: 20160919, end: 20160919
  25. SOL-MELCORT [Concomitant]
     Active Substance: METHYLPREDNISOLONE SODIUM SUCCINATE
     Dosage: 90 ML, QD
     Route: 065
     Dates: start: 20160726, end: 20160730
  26. SOL-MELCORT [Concomitant]
     Active Substance: METHYLPREDNISOLONE SODIUM SUCCINATE
     Dosage: 125 ML, QD
     Route: 065
     Dates: start: 20160802, end: 20160810
  27. SOL-MELCORT [Concomitant]
     Active Substance: METHYLPREDNISOLONE SODIUM SUCCINATE
     Dosage: UNK
     Route: 065
     Dates: start: 20160917, end: 20160917
  28. SOL-MELCORT [Concomitant]
     Active Substance: METHYLPREDNISOLONE SODIUM SUCCINATE
     Dosage: 125 MG, QD
     Route: 065
     Dates: start: 20160921, end: 20160921
  29. ONCOVIN [Concomitant]
     Active Substance: VINCRISTINE SULFATE
     Dosage: 1.4 MG, QD
     Route: 065
     Dates: start: 20160506, end: 20160506
  30. FILGRASTIM BS [FILGRASTIM BIOSIMILAR 1] [Concomitant]
     Dosage: 75 UG, QD
     Route: 065
     Dates: start: 20160507, end: 20160511
  31. CYMERIN [Concomitant]
     Active Substance: RANIMUSTINE
     Dosage: 85 MG, QD
     Route: 065
     Dates: start: 20160513, end: 20160513
  32. DISTILLED WATER [WATER FOR INJECTION] [Concomitant]
     Dosage: 2.5 ML, QD
     Route: 065
     Dates: start: 20160607, end: 20160611
  33. DISTILLED WATER [WATER FOR INJECTION] [Concomitant]
     Dosage: UNK UNK, QD
     Route: 065
     Dates: start: 20160908, end: 20160909
  34. HAPTOGLOBIN [Concomitant]
     Dosage: UNK, TID
     Route: 065
     Dates: start: 20160613, end: 20160613
  35. POLARAMINE [Concomitant]
     Active Substance: DEXCHLORPHENIRAMINE MALEATE
     Dosage: UNK UNK, QD
     Route: 065
     Dates: start: 20160918, end: 20160920
  36. MEROPEN [MEROPENEM TRIHYDRATE] [Concomitant]
     Active Substance: MEROPENEM
     Dosage: 1000 MG, QD
     Route: 065
     Dates: start: 20160614, end: 20160615
  37. LASIX [Concomitant]
     Active Substance: FUROSEMIDE
     Dosage: 10 MG, QD
     Route: 065
     Dates: start: 20160801, end: 20160801
  38. LASIX [Concomitant]
     Active Substance: FUROSEMIDE
     Dosage: 20 MG, BID
     Route: 065
     Dates: start: 20160808, end: 20160808
  39. OMEPRAZOLE. [Concomitant]
     Active Substance: OMEPRAZOLE
     Dosage: 20 MG, TID
     Route: 065
     Dates: start: 20160628, end: 20160628
  40. NEUTROGIN [Concomitant]
     Active Substance: LENOGRASTIM
     Dosage: 250 UG, QD
     Route: 065
     Dates: start: 20160829, end: 20160830
  41. NEUTROGIN [Concomitant]
     Active Substance: LENOGRASTIM
     Dosage: 250 UG, QD
     Route: 065
     Dates: start: 20160904, end: 20160906
  42. VICCLOX [ACICLOVIR] [Concomitant]
     Dosage: 250 MG, QD
     Route: 065
     Dates: start: 20160621, end: 20160626
  43. VICCLOX [ACICLOVIR] [Concomitant]
     Dosage: 250 MG, QD
     Route: 065
     Dates: start: 20160731, end: 20160809
  44. ELNEOPA NO.1 [Concomitant]
     Active Substance: AMINO ACIDS\DEXTROSE\ELECTROLYTES NOS\MINERALS\VITAMINS
     Dosage: 1000 ML, QD
     Route: 065
     Dates: start: 20160707, end: 20160716
  45. ACELIO [Concomitant]
     Active Substance: ACETAMINOPHEN
     Dosage: 1500 MG
     Route: 065
     Dates: start: 20160624, end: 20160624
  46. ACELIO [Concomitant]
     Active Substance: ACETAMINOPHEN
     Dosage: 1000 MG, QD
     Route: 065
     Dates: start: 20160814, end: 20160814
  47. DIAMOX SEQUELS [Concomitant]
     Active Substance: ACETAZOLAMIDE
     Dosage: 250 MG, BID
     Route: 065
     Dates: start: 20160630, end: 20160630
  48. FUNGUARD [Concomitant]
     Active Substance: MICAFUNGIN SODIUM
     Dosage: 150 MG, QD
     Route: 065
     Dates: start: 20160701, end: 20160731
  49. FUNGUARD [Concomitant]
     Active Substance: MICAFUNGIN SODIUM
     Dosage: 150 MG, QD
     Route: 065
     Dates: start: 20160906, end: 20160913
  50. HUMACART R [Concomitant]
     Active Substance: INSULIN HUMAN
     Dosage: UNK UNK, TID
     Route: 065
     Dates: start: 20160921, end: 20160921
  51. THYMOGLOBULINE [Concomitant]
     Active Substance: LAPINE T-LYMPHOCYTE IMMUNE GLOBULIN
     Dosage: 55 MG, QD
     Route: 065
     Dates: start: 20160825, end: 20160825
  52. NOVORAPID [Concomitant]
     Active Substance: INSULIN ASPART
     Dosage: UNK UNK, TID
     Route: 065
     Dates: start: 20160906, end: 20160906
  53. MORPHINE HYDROCHLORIDE TRIHYDRATE [Concomitant]
     Active Substance: MORPHINE HYDROCHLORIDE
     Dosage: 1 ML, QD
     Route: 065
     Dates: start: 20160710, end: 20160710
  54. SOLACET F [Concomitant]
     Active Substance: CALCIUM CHLORIDE\POTASSIUM CHLORIDE\SODIUM ACETATE\SODIUM CHLORIDE
     Dosage: 500 ML, QD
     Route: 065
     Dates: start: 20160826, end: 20160826
  55. MAXIPIME [Concomitant]
     Active Substance: CEFEPIME HYDROCHLORIDE
     Dosage: 1000 MG, QD
     Route: 065
     Dates: start: 20160808, end: 20160808
  56. REMICADE [Concomitant]
     Active Substance: INFLIXIMAB
     Dosage: 250 MG, QD
     Route: 065
     Dates: start: 20160909, end: 20160909
  57. GATIFLO [Concomitant]
     Active Substance: GATIFLOXACIN
     Dosage: UNK
     Route: 047
     Dates: start: 20160821, end: 20160821
  58. HEPARINOID [Concomitant]
     Active Substance: CHONDROITIN SULFATE (BOVINE)
     Dosage: UNK
     Route: 061
     Dates: start: 20160817, end: 20160817
  59. ADONA [CARBAZOCHROME SODIUM SULFONATE] [Concomitant]
     Active Substance: CARBAZOCHROME SODIUM SULFONATE
     Dosage: 100 MG, BID
     Route: 065
     Dates: start: 20160728, end: 20160728
  60. ADONA [CARBAZOCHROME SODIUM SULFONATE] [Concomitant]
     Active Substance: CARBAZOCHROME SODIUM SULFONATE
     Dosage: 100 MG, QD
     Route: 065
     Dates: start: 20160907, end: 20160920
  61. NICARDIPINE HYDROCHLORIDE. [Concomitant]
     Active Substance: NICARDIPINE HYDROCHLORIDE
     Dosage: 50 MG, BID
     Route: 065
     Dates: start: 20160902, end: 20160902
  62. RITUXAN [Concomitant]
     Active Substance: RITUXIMAB
     Dosage: 550 MG, 1X/WEEK
     Route: 065
     Dates: start: 20160809, end: 20160913
  63. FINIBAX [Concomitant]
     Active Substance: DORIPENEM MONOHYDRATE
     Dosage: UNK, 5X/DAY
     Route: 065
     Dates: start: 20160920, end: 20160920
  64. FINIBAX [Concomitant]
     Active Substance: DORIPENEM MONOHYDRATE
     Dosage: 250 MG, BID
     Route: 065
     Dates: start: 20160921, end: 20160921
  65. TEICOPLANIN [Concomitant]
     Active Substance: TEICOPLANIN
     Dosage: 400 MG, QD
     Route: 065
     Dates: start: 20160920, end: 20160921
  66. NORADRENALINE [NOREPINEPHRINE] [Concomitant]
     Active Substance: NOREPINEPHRINE
     Dosage: 2 MG, QID
     Route: 065
     Dates: start: 20160920, end: 20160921
  67. PRECEDEX [Concomitant]
     Active Substance: DEXMEDETOMIDINE HYDROCHLORIDE
     Dosage: 200 UG, QID
     Route: 065
     Dates: start: 20160920, end: 20160920
  68. ISOTONIC SODIUM CHLORIDE SOLUTION [Concomitant]
     Active Substance: SODIUM CHLORIDE
     Dosage: UNK UNK, BID
     Route: 065
     Dates: start: 20160607, end: 20160922
  69. SAXIZON [Concomitant]
     Active Substance: HYDROCORTISONE SODIUM SUCCINATE
     Dosage: 100 MG, QD
     Route: 065
     Dates: start: 20160727, end: 20160728
  70. SOLDEM 1 [Concomitant]
     Active Substance: DEXTROSE\SODIUM CHLORIDE\SODIUM LACTATE
     Dosage: 1500 ML, QD
     Route: 065
     Dates: start: 20160427, end: 20160427
  71. SOLDEM 1 [Concomitant]
     Active Substance: DEXTROSE\SODIUM CHLORIDE\SODIUM LACTATE
     Dosage: 1000 ML, QD
     Route: 065
     Dates: start: 20160428, end: 20160428
  72. HEPARIN NA LOCK [Concomitant]
     Active Substance: HEPARIN SODIUM
     Dosage: 10 ML, QD
     Route: 065
     Dates: start: 20160424, end: 20160424
  73. HEPARIN NA LOCK [Concomitant]
     Active Substance: HEPARIN SODIUM
     Dosage: 10 ML, QID
     Route: 065
     Dates: start: 20160605, end: 20160605
  74. HEPARIN NA LOCK [Concomitant]
     Active Substance: HEPARIN SODIUM
     Dosage: 10 ML, QD
     Route: 065
     Dates: start: 20160705, end: 20160710
  75. SOL-MELCORT [Concomitant]
     Active Substance: METHYLPREDNISOLONE SODIUM SUCCINATE
     Dosage: 110 ML, QD
     Route: 065
     Dates: start: 20160716, end: 20160720
  76. SOL-MELCORT [Concomitant]
     Active Substance: METHYLPREDNISOLONE SODIUM SUCCINATE
     Dosage: 500 MG, QD
     Route: 065
     Dates: start: 20160918, end: 20160919
  77. ACICLOVIR [Concomitant]
     Active Substance: ACYCLOVIR
     Dosage: 200 MG, QD
     Route: 048
     Dates: start: 20160510, end: 20160604
  78. ENDOXAN [CYCLOPHOSPHAMIDE MONOHYDRATE] [Concomitant]
     Active Substance: CYCLOPHOSPHAMIDE
     Dosage: 500 MG
     Route: 065
     Dates: start: 20160506, end: 20160506
  79. AZUNOL GARGLE LIQUID [Concomitant]
     Dosage: UNK
     Dates: start: 20160618, end: 20160618
  80. URSODEOXYCHOLIC ACID [Concomitant]
     Active Substance: URSODIOL
     Dosage: 200 MG, TID
     Route: 048
     Dates: start: 20160605, end: 20160622
  81. DISTILLED WATER [WATER FOR INJECTION] [Concomitant]
     Dosage: UNK UNK, QD
     Route: 065
     Dates: start: 20160714, end: 20160715
  82. ALKERAN [Concomitant]
     Active Substance: MELPHALAN
     Dosage: 100 MG, QD
     Route: 065
     Dates: start: 20160610, end: 20160611
  83. MEROPENEM [MEROPENEM TRIHYDRATE] [Concomitant]
     Active Substance: MEROPENEM
     Dosage: 1000 MG, TID
     Route: 065
     Dates: start: 20160616, end: 20160627
  84. LASIX [Concomitant]
     Active Substance: FUROSEMIDE
     Dosage: UNK UNK, QD
     Route: 065
     Dates: start: 20160619, end: 20160708
  85. LASIX [Concomitant]
     Active Substance: FUROSEMIDE
     Dosage: 20 MG, QD
     Route: 065
     Dates: start: 20160723, end: 20160723
  86. LASIX [Concomitant]
     Active Substance: FUROSEMIDE
     Dosage: 20 MG, QD
     Route: 065
     Dates: start: 20160828, end: 20160828
  87. MAGNESIUM SULFATE. [Concomitant]
     Active Substance: MAGNESIUM SULFATE
     Dosage: 20 ML, QD
     Route: 065
     Dates: start: 20160615, end: 20160626
  88. MAGNESIUM SULFATE. [Concomitant]
     Active Substance: MAGNESIUM SULFATE
     Dosage: 20 ML, QD
     Route: 065
     Dates: start: 20160630, end: 20160630
  89. MAGNESIUM SULFATE. [Concomitant]
     Active Substance: MAGNESIUM SULFATE
     Dosage: 20 ML, QD
     Route: 065
     Dates: start: 20160721, end: 20160727
  90. LOPERAMIDE HYDROCHLORIDE. [Concomitant]
     Active Substance: LOPERAMIDE HYDROCHLORIDE
     Dosage: 1 MG, QD
     Route: 048
     Dates: start: 20160703, end: 20160703
  91. OMEPRAZOLE. [Concomitant]
     Active Substance: OMEPRAZOLE
     Dosage: 20 MG, BID
     Route: 065
     Dates: start: 20160620, end: 20160627
  92. ELNEOPA NO.1 [Concomitant]
     Active Substance: AMINO ACIDS\DEXTROSE\ELECTROLYTES NOS\MINERALS\VITAMINS
     Dosage: 1000 ML, QD
     Route: 065
     Dates: start: 20160621, end: 20160628
  93. ELNEOPA NO.1 [Concomitant]
     Active Substance: AMINO ACIDS\DEXTROSE\ELECTROLYTES NOS\MINERALS\VITAMINS
     Dosage: 1000 ML, QD
     Route: 065
     Dates: start: 20160702, end: 20160704
  94. ELNEOPA NO.1 [Concomitant]
     Active Substance: AMINO ACIDS\DEXTROSE\ELECTROLYTES NOS\MINERALS\VITAMINS
     Dosage: 1500 ML, QD
     Route: 065
     Dates: start: 20160717, end: 20160727
  95. HANP [Concomitant]
     Active Substance: CARPERITIDE
     Dosage: 2000 UG, BID
     Route: 065
     Dates: start: 20160629, end: 20160701
  96. FULCALIQ [Concomitant]
     Active Substance: AMINO ACIDS\CARBOHYDRATES\ELECTROLYTES NOS\VITAMINS
     Dosage: 903 ML, QD
     Route: 065
     Dates: start: 20160628, end: 20160701
  97. VFEND [Concomitant]
     Active Substance: VORICONAZOLE
     Dosage: 200 MG, BID
     Route: 065
     Dates: start: 20160623, end: 20160627
  98. DIBASIC POTASSIUM PHOSPHATE [Concomitant]
     Active Substance: POTASSIUM PHOSPHATE, DIBASIC
     Dosage: 20 ML, QD
     Route: 065
     Dates: start: 20160816, end: 20160816
  99. THYMOGLOBULINE [Concomitant]
     Active Substance: LAPINE T-LYMPHOCYTE IMMUNE GLOBULIN
     Dosage: 14 MG, QD
     Route: 065
     Dates: start: 20160702, end: 20160702
  100. THYMOGLOBULINE [Concomitant]
     Active Substance: LAPINE T-LYMPHOCYTE IMMUNE GLOBULIN
     Dosage: 55 MG, QD
     Route: 065
     Dates: start: 20160915, end: 20160915
  101. HIRUDOID [Concomitant]
     Active Substance: GLYCOSAMINOGLYCANS
     Dosage: UNK
     Route: 061
     Dates: start: 20160630, end: 20160630
  102. TARIVID [OFLOXACIN] [Concomitant]
     Dosage: 3.5 G
     Route: 047
     Dates: start: 20160802, end: 20160802
  103. FLUMETHOLON [Concomitant]
     Active Substance: FLUOROMETHOLONE
     Dosage: UNK
     Route: 047
     Dates: start: 20160802, end: 20160802
  104. SOSEGON [PENTAZOCINE] [Concomitant]
     Active Substance: PENTAZOCINE
     Dosage: 7.5 MG, QD
     Route: 065
     Dates: start: 20160729, end: 20160729
  105. SOSEGON [PENTAZOCINE] [Concomitant]
     Active Substance: PENTAZOCINE
     Dosage: 7.5 MG, QD
     Route: 065
     Dates: start: 20160908, end: 20160908
  106. TRANEXAMIC ACID. [Concomitant]
     Active Substance: TRANEXAMIC ACID
     Dosage: 1000 MG, QD
     Route: 065
     Dates: start: 20160814, end: 20160829
  107. NICARDIPINE HYDROCHLORIDE. [Concomitant]
     Active Substance: NICARDIPINE HYDROCHLORIDE
     Dosage: 50 MG, QD
     Route: 065
     Dates: start: 20160817, end: 20160817
  108. HICALIQ [Concomitant]
     Active Substance: CALCIUM GLUCONATE\DEXTROSE\MAGNESIUM SULFATE\POTASSIUM ACETATE\POTASSIUM PHOSPHATE, DIBASIC\ZINC SULFATE
     Dosage: 500 ML, QD
     Route: 065
     Dates: start: 20160921, end: 20160921
  109. ELNEOPA NO.2 [Concomitant]
     Active Substance: AMINO ACIDS\DEXTROSE\ELECTROLYTES NOS\MINERALS\VITAMINS
     Dosage: 1000 ML, QD
     Route: 065
     Dates: start: 20160811, end: 20160823
  110. PRODIF [Concomitant]
     Active Substance: FOSFLUCONAZOLE
     Dosage: 100 MG, QD
     Route: 065
     Dates: start: 20160804, end: 20160905
  111. FINIBAX [Concomitant]
     Active Substance: DORIPENEM MONOHYDRATE
     Dosage: UNK, TID
     Route: 065
     Dates: start: 20160919, end: 20160919
  112. AMBISOME [Concomitant]
     Active Substance: AMPHOTERICIN B
     Dosage: 250 MG, QD
     Route: 065
     Dates: start: 20160921, end: 20160921
  113. PRECEDEX [Concomitant]
     Active Substance: DEXMEDETOMIDINE HYDROCHLORIDE
     Dosage: 200 UG, TID
     Route: 065
     Dates: start: 20160919, end: 20160919
  114. FENTANYL. [Concomitant]
     Active Substance: FENTANYL
     Dosage: 20 MG, BID
     Route: 065
     Dates: start: 20160919, end: 20160920
  115. ISOTONIC SODIUM CHLORIDE SOLUTION [Concomitant]
     Active Substance: SODIUM CHLORIDE
     Dosage: 20 ML, QD
     Route: 065
     Dates: start: 20160429, end: 20160429
  116. SAXIZON [Concomitant]
     Active Substance: HYDROCORTISONE SODIUM SUCCINATE
     Dosage: 100 MG, QD
     Route: 065
     Dates: start: 20160702, end: 20160702
  117. SAXIZON [Concomitant]
     Active Substance: HYDROCORTISONE SODIUM SUCCINATE
     Dosage: 100 MG, QD
     Route: 065
     Dates: start: 20160710, end: 20160710
  118. SAXIZON [Concomitant]
     Active Substance: HYDROCORTISONE SODIUM SUCCINATE
     Dosage: 100 MG, QD
     Route: 065
     Dates: start: 20160816, end: 20160816
  119. SAXIZON [Concomitant]
     Active Substance: HYDROCORTISONE SODIUM SUCCINATE
     Dosage: 100 MG, QD
     Route: 065
     Dates: start: 20160818, end: 20160818
  120. SAXIZON [Concomitant]
     Active Substance: HYDROCORTISONE SODIUM SUCCINATE
     Dosage: 100 MG, QD
     Route: 065
     Dates: start: 20160830, end: 20160830
  121. SOLDEM 1 [Concomitant]
     Active Substance: DEXTROSE\SODIUM CHLORIDE\SODIUM LACTATE
     Dosage: 1500 ML, QD
     Route: 065
     Dates: start: 20160606, end: 20160613
  122. HEPARIN NA LOCK [Concomitant]
     Active Substance: HEPARIN SODIUM
     Dosage: 20 ML, QD
     Route: 065
     Dates: start: 20160422, end: 20160422
  123. HEPARIN NA LOCK [Concomitant]
     Active Substance: HEPARIN SODIUM
     Dosage: 10 ML, QID
     Route: 065
     Dates: start: 20160513, end: 20160514
  124. HEPARIN NA LOCK [Concomitant]
     Active Substance: HEPARIN SODIUM
     Dosage: 10 ML, TID
     Route: 065
     Dates: start: 20160515, end: 20160524
  125. HEPARIN NA LOCK [Concomitant]
     Active Substance: HEPARIN SODIUM
     Dosage: 10 ML, BID
     Route: 065
     Dates: start: 20160905, end: 20160905
  126. LEVOFLOXACIN HEMIHYDRATE [Concomitant]
     Active Substance: LEVOFLOXACIN
     Dosage: 500 MG, BID
     Route: 048
     Dates: start: 20160503, end: 20160503
  127. LEVOFLOXACIN HEMIHYDRATE [Concomitant]
     Active Substance: LEVOFLOXACIN
     Dosage: 500 MG, QD
     Route: 048
     Dates: start: 20160504, end: 20160615
  128. SOL-MELCORT [Concomitant]
     Active Substance: METHYLPREDNISOLONE SODIUM SUCCINATE
     Dosage: 125 MG, QD
     Route: 065
     Dates: start: 20160628, end: 20160628
  129. SOL-MELCORT [Concomitant]
     Active Substance: METHYLPREDNISOLONE SODIUM SUCCINATE
     Dosage: 100 ML, QD
     Route: 065
     Dates: start: 20160721, end: 20160725
  130. SOL-MELCORT [Concomitant]
     Active Substance: METHYLPREDNISOLONE SODIUM SUCCINATE
     Dosage: 80 ML, QD
     Route: 065
     Dates: start: 20160731, end: 20160801
  131. SOL-MELCORT [Concomitant]
     Active Substance: METHYLPREDNISOLONE SODIUM SUCCINATE
     Dosage: 110 ML, QD
     Route: 065
     Dates: start: 20160811, end: 20160903
  132. WHITE PETROLATUM [Concomitant]
     Active Substance: PETROLATUM
     Dosage: 100 G
     Dates: start: 20160730, end: 20160730
  133. GRANISETRON [Concomitant]
     Active Substance: GRANISETRON
     Dosage: 3 MG, 1X/WEEK
     Route: 065
     Dates: start: 20160506, end: 20160513
  134. AZUNOL GARGLE LIQUID [Concomitant]
     Dosage: UNK
     Dates: start: 20160630, end: 20160630
  135. VALTREX [Concomitant]
     Active Substance: VALACYCLOVIR HYDROCHLORIDE
     Dosage: 500 MG, BID
     Route: 048
     Dates: start: 20160605, end: 20160622
  136. URSODEOXYCHOLIC ACID [Concomitant]
     Active Substance: URSODIOL
     Dosage: 200 MG, TID
     Route: 048
     Dates: start: 20160907, end: 20160922
  137. DISTILLED WATER [WATER FOR INJECTION] [Concomitant]
     Dosage: 20 ML, QD
     Route: 065
     Dates: start: 20160702, end: 20160704
  138. DISTILLED WATER [WATER FOR INJECTION] [Concomitant]
     Dosage: 40 ML, QD
     Route: 065
     Dates: start: 20160905, end: 20160905
  139. LASIX [Concomitant]
     Active Substance: FUROSEMIDE
     Dosage: 10 MG, QD
     Route: 065
     Dates: start: 20160614, end: 20160616
  140. MAGNESIUM SULFATE. [Concomitant]
     Active Substance: MAGNESIUM SULFATE
     Dosage: 20 ML, QD
     Route: 065
     Dates: start: 20160706, end: 20160710
  141. LOPERAMIDE HYDROCHLORIDE. [Concomitant]
     Active Substance: LOPERAMIDE HYDROCHLORIDE
     Dosage: 1 MG, QD
     Route: 048
     Dates: start: 20160617, end: 20160617
  142. VANCOMYCIN [Concomitant]
     Active Substance: VANCOMYCIN
     Dosage: 250 MG, QD
     Route: 065
     Dates: start: 20160622, end: 20160626
  143. VICCLOX [ACICLOVIR] [Concomitant]
     Dosage: 125 MG, QD
     Route: 065
     Dates: start: 20160810, end: 20160810
  144. VICCLOX [ACICLOVIR] [Concomitant]
     Dosage: 250 MG, QD
     Route: 065
     Dates: start: 20160901, end: 20160914
  145. ELNEOPA NO.1 [Concomitant]
     Active Substance: AMINO ACIDS\DEXTROSE\ELECTROLYTES NOS\MINERALS\VITAMINS
     Dosage: 1500 ML, QD
     Route: 065
     Dates: start: 20160705, end: 20160706
  146. ACELIO [Concomitant]
     Active Substance: ACETAMINOPHEN
     Dosage: 1000 MG, QD
     Route: 065
     Dates: start: 20160620, end: 20160620
  147. ALBUMIN [Concomitant]
     Active Substance: ALBUMIN HUMAN
     Dosage: 100 ML, QD
     Route: 065
     Dates: start: 20160808, end: 20160808
  148. DIBASIC POTASSIUM PHOSPHATE [Concomitant]
     Active Substance: POTASSIUM PHOSPHATE, DIBASIC
     Dosage: 20 ML, QD
     Route: 065
     Dates: start: 20160802, end: 20160805
  149. THYMOGLOBULINE [Concomitant]
     Active Substance: LAPINE T-LYMPHOCYTE IMMUNE GLOBULIN
     Dosage: 55 MG, QD
     Route: 065
     Dates: start: 20160710, end: 20160710
  150. THYMOGLOBULINE [Concomitant]
     Active Substance: LAPINE T-LYMPHOCYTE IMMUNE GLOBULIN
     Dosage: 55 MG, QD
     Route: 065
     Dates: start: 20160727, end: 20160728
  151. NOVORAPID [Concomitant]
     Active Substance: INSULIN ASPART
     Dosage: UNK UNK, TID
     Route: 065
     Dates: start: 20160821, end: 20160821
  152. HEPAFLUSH [Concomitant]
     Active Substance: HEPARIN SODIUM
     Dosage: 10 ML, BID
     Route: 065
     Dates: start: 20160817, end: 20160817
  153. HEPAFLUSH [Concomitant]
     Active Substance: HEPARIN SODIUM
     Dosage: 10 ML, QD
     Route: 065
     Dates: start: 20160818, end: 20160914
  154. HEPAFLUSH [Concomitant]
     Active Substance: HEPARIN SODIUM
     Dosage: 10 ML, BID
     Route: 065
     Dates: start: 20160915, end: 20160920
  155. SOLACET F [Concomitant]
     Active Substance: CALCIUM CHLORIDE\POTASSIUM CHLORIDE\SODIUM ACETATE\SODIUM CHLORIDE
     Dosage: 1000 ML, QD
     Route: 065
     Dates: start: 20160713, end: 20160713
  156. REMICADE [Concomitant]
     Active Substance: INFLIXIMAB
     Dosage: 250 MG, 1X/WEEK
     Route: 065
     Dates: start: 20160723, end: 20160819
  157. HYALEIN [Concomitant]
     Active Substance: HYALURONATE SODIUM
     Dosage: UNK UNK, QID
     Route: 047
     Dates: start: 20160821, end: 20160821
  158. TRANEXAMIC ACID. [Concomitant]
     Active Substance: TRANEXAMIC ACID
     Dosage: 1000 MG, QD
     Route: 065
     Dates: start: 20160907, end: 20160920
  159. NICARDIPINE HYDROCHLORIDE. [Concomitant]
     Active Substance: NICARDIPINE HYDROCHLORIDE
     Dosage: 50 MG, BID
     Route: 065
     Dates: start: 20160830, end: 20160830
  160. HICALIQ [Concomitant]
     Active Substance: CALCIUM GLUCONATE\DEXTROSE\MAGNESIUM SULFATE\POTASSIUM ACETATE\POTASSIUM PHOSPHATE, DIBASIC\ZINC SULFATE
     Dosage: 500 ML, QD
     Route: 065
     Dates: start: 20160808, end: 20160810
  161. POLYGLOBIN [Concomitant]
     Active Substance: HUMAN IMMUNOGLOBULIN G
     Dosage: 5000 MG, QD
     Route: 065
     Dates: start: 20160728, end: 20160730
  162. FINIBAX [Concomitant]
     Active Substance: DORIPENEM MONOHYDRATE
     Dosage: 250 MG, BID
     Route: 065
     Dates: start: 20160814, end: 20160918
  163. MUCOSTA [Concomitant]
     Active Substance: REBAMIPIDE
     Dosage: UNK, QOD
     Route: 047
     Dates: start: 20160908, end: 20160912
  164. ATARAX-P [HYDROXYZINE HYDROCHLORIDE] [Concomitant]
     Dosage: 25 MG
     Route: 065
     Dates: start: 20160826, end: 20160826
  165. CUBICIN [Concomitant]
     Active Substance: DAPTOMYCIN
     Dosage: 300 MG, QOD
     Route: 065
     Dates: start: 20160909, end: 20160911
  166. AMBISOME [Concomitant]
     Active Substance: AMPHOTERICIN B
     Dosage: 130 MG, QD
     Route: 065
     Dates: start: 20160913, end: 20160919
  167. PRECEDEX [Concomitant]
     Active Substance: DEXMEDETOMIDINE HYDROCHLORIDE
     Dosage: 200 UG, TID
     Route: 065
     Dates: start: 20160921, end: 20160921
  168. POTELIGEO [Suspect]
     Active Substance: MOGAMULIZUMAB-KPKC
     Indication: ADULT T-CELL LYMPHOMA/LEUKAEMIA
     Dosage: 54 MG, QD
     Route: 041
     Dates: start: 20160504, end: 20160504
  169. CALONAL [Concomitant]
     Active Substance: ACETAMINOPHEN
     Dosage: 400 MG, QD
     Route: 048
     Dates: start: 20160617, end: 20160617
  170. ISOTONIC SODIUM CHLORIDE SOLUTION [Concomitant]
     Active Substance: SODIUM CHLORIDE
     Dosage: 20 ML, BID
     Route: 065
     Dates: start: 20160502, end: 20160502
  171. SAXIZON [Concomitant]
     Active Substance: HYDROCORTISONE SODIUM SUCCINATE
     Dosage: 100 MG
     Route: 065
     Dates: start: 20160427, end: 20160427
  172. SAXIZON [Concomitant]
     Active Substance: HYDROCORTISONE SODIUM SUCCINATE
     Dosage: 100 MG, QD
     Route: 065
     Dates: start: 20160809, end: 20160809
  173. SOLDEM 1 [Concomitant]
     Active Substance: DEXTROSE\SODIUM CHLORIDE\SODIUM LACTATE
     Dosage: 1500 ML, QD
     Route: 065
     Dates: start: 20160807, end: 20160823
  174. SOLDEM 1 [Concomitant]
     Active Substance: DEXTROSE\SODIUM CHLORIDE\SODIUM LACTATE
     Dosage: 500 ML, QD
     Route: 065
     Dates: start: 20160824, end: 20160824
  175. HEPARIN NA LOCK [Concomitant]
     Active Substance: HEPARIN SODIUM
     Dosage: 10 ML, QID
     Route: 065
     Dates: start: 20160528, end: 20160528
  176. HEPARIN NA LOCK [Concomitant]
     Active Substance: HEPARIN SODIUM
     Dosage: 10 ML, TID
     Route: 065
     Dates: start: 20160617, end: 20160627
  177. HEPARIN NA LOCK [Concomitant]
     Active Substance: HEPARIN SODIUM
     Dosage: UNK
     Route: 065
     Dates: start: 20160711, end: 20160722
  178. HEPARIN NA LOCK [Concomitant]
     Active Substance: HEPARIN SODIUM
     Dosage: UNK
     Route: 065
     Dates: start: 20160724, end: 20160808
  179. SOL-MELCORT [Concomitant]
     Active Substance: METHYLPREDNISOLONE SODIUM SUCCINATE
     Dosage: 125 MG, QD
     Route: 065
     Dates: start: 20160428, end: 20160428
  180. SOL-MELCORT [Concomitant]
     Active Substance: METHYLPREDNISOLONE SODIUM SUCCINATE
     Dosage: 125 ML, QD
     Route: 065
     Dates: start: 20160711, end: 20160715
  181. SOL-MELCORT [Concomitant]
     Active Substance: METHYLPREDNISOLONE SODIUM SUCCINATE
     Dosage: UNK, BID
     Route: 065
     Dates: start: 20160904, end: 20160904
  182. SOL-MELCORT [Concomitant]
     Active Substance: METHYLPREDNISOLONE SODIUM SUCCINATE
     Dosage: 125 MG, QD
     Route: 065
     Dates: start: 20160907, end: 20160916
  183. WHITE PETROLATUM [Concomitant]
     Active Substance: PETROLATUM
     Dosage: 30 G
     Dates: start: 20160511, end: 20160511
  184. DAIPHEN [Concomitant]
     Active Substance: SULFAMETHOXAZOLE\TRIMETHOPRIM
     Dosage: 0.5 DF, QD
     Route: 048
     Dates: start: 20160914
  185. GRANISETRON [Concomitant]
     Active Substance: GRANISETRON
     Dosage: 3 MG, BID
     Route: 065
     Dates: start: 20160607, end: 20160611
  186. FILGRASTIM BS [FILGRASTIM BIOSIMILAR 1] [Concomitant]
     Dosage: 75 UG, QD
     Route: 065
     Dates: start: 20160514, end: 20160529
  187. DOXORUBICIN HYDROCHLORIDE. [Concomitant]
     Active Substance: DOXORUBICIN HYDROCHLORIDE
     Dosage: UNK, 1X/WEEK
     Route: 065
     Dates: start: 20160506, end: 20160513
  188. GLUCOSE [Concomitant]
     Active Substance: DEXTROSE
     Dosage: UNK UNK, QD
     Route: 065
     Dates: start: 20160913, end: 20160921
  189. FLUDARA [Concomitant]
     Active Substance: FLUDARABINE PHOSPHATE
     Dosage: 35 MG, QD
     Route: 065
     Dates: start: 20160607, end: 20160611
  190. POLARAMINE [Concomitant]
     Active Substance: DEXCHLORPHENIRAMINE MALEATE
     Dosage: 5 MG, QOD
     Route: 065
     Dates: start: 20160622, end: 20160626
  191. POLARAMINE [Concomitant]
     Active Substance: DEXCHLORPHENIRAMINE MALEATE
     Dosage: UNK UNK, QD
     Route: 065
     Dates: start: 20160628, end: 20160629
  192. POLARAMINE [Concomitant]
     Active Substance: DEXCHLORPHENIRAMINE MALEATE
     Dosage: 5 MG, QD
     Route: 065
     Dates: start: 20160713, end: 20160715
  193. MEROPENEM [MEROPENEM TRIHYDRATE] [Concomitant]
     Active Substance: MEROPENEM
     Dosage: 1000 MG, QID
     Route: 065
     Dates: start: 20160628, end: 20160628
  194. LASIX [Concomitant]
     Active Substance: FUROSEMIDE
     Dosage: 40 MG, QD
     Route: 065
     Dates: start: 20160719, end: 20160719
  195. LASIX [Concomitant]
     Active Substance: FUROSEMIDE
     Dosage: 500 ML, QD
     Route: 065
     Dates: start: 20160908, end: 20160908
  196. OMEPRAZOLE. [Concomitant]
     Active Substance: OMEPRAZOLE
     Dosage: 20 MG, QID
     Route: 065
     Dates: start: 20160920, end: 20160920
  197. NEUTROGIN [Concomitant]
     Active Substance: LENOGRASTIM
     Dosage: 250 UG, QD
     Route: 065
     Dates: start: 20160901, end: 20160902
  198. ALBUMIN [Concomitant]
     Active Substance: ALBUMIN HUMAN
     Dosage: 100 ML, QD
     Route: 065
     Dates: start: 20160730, end: 20160730
  199. XYLOCAINE [Concomitant]
     Active Substance: LIDOCAINE HYDROCHLORIDE
     Dosage: 20 ML, QD
     Route: 065
     Dates: start: 20160919, end: 20160919
  200. KCL [Concomitant]
     Active Substance: POTASSIUM CHLORIDE
     Dosage: 20 ML, QD
     Route: 065
     Dates: start: 20160730, end: 20160801
  201. HANP [Concomitant]
     Active Substance: CARPERITIDE
     Dosage: 6000 UG
     Route: 065
     Dates: start: 20160628, end: 20160628
  202. THYMOGLOBULINE [Concomitant]
     Active Substance: LAPINE T-LYMPHOCYTE IMMUNE GLOBULIN
     Dosage: 55 MG, QD
     Route: 065
     Dates: start: 20160713, end: 20160715
  203. MINERIC 5 [Concomitant]
     Dosage: 2 ML, QD
     Route: 065
     Dates: start: 20160628, end: 20160701
  204. ZINC OXIDE. [Concomitant]
     Active Substance: ZINC OXIDE
     Dosage: 50 G
     Route: 061
     Dates: start: 20160713, end: 20160713
  205. RESTAMIN KOWA [Concomitant]
     Dosage: 30 G
     Dates: start: 20160712, end: 20160712
  206. MOVIPREP [Concomitant]
     Active Substance: ASCORBIC ACID\POLYETHYLENE GLYCOL 3350\POTASSIUM CHLORIDE\SODIUM ASCORBATE\SODIUM CHLORIDE\SODIUM SULFATE
     Dosage: UNK
     Route: 048
     Dates: start: 20160707, end: 20160707
  207. NOVORAPID [Concomitant]
     Active Substance: INSULIN ASPART
     Dosage: UNK UNK, TID
     Route: 065
     Dates: start: 20160709, end: 20160709
  208. LOCOID [Concomitant]
     Active Substance: HYDROCORTISONE BUTYRATE
     Dosage: 2 G
     Route: 061
     Dates: start: 20160824, end: 20160824
  209. HYALEIN [Concomitant]
     Active Substance: HYALURONATE SODIUM
     Dosage: UNK
     Route: 047
     Dates: start: 20160730, end: 20160730
  210. HEPARINOID [Concomitant]
     Active Substance: CHONDROITIN SULFATE (BOVINE)
     Dosage: UNK
     Route: 061
     Dates: start: 20160824, end: 20160824
  211. ADONA [CARBAZOCHROME SODIUM SULFONATE] [Concomitant]
     Active Substance: CARBAZOCHROME SODIUM SULFONATE
     Dosage: 100 MG, BID
     Route: 065
     Dates: start: 20160906, end: 20160906
  212. SANDIMMUN [Concomitant]
     Active Substance: CYCLOSPORINE
     Dosage: UNK UNK, QD
     Route: 065
     Dates: start: 20160803, end: 20160808
  213. SOSEGON [PENTAZOCINE] [Concomitant]
     Active Substance: PENTAZOCINE
     Dosage: 7.5 MG, QD
     Route: 065
     Dates: start: 20160808, end: 20160808
  214. SOSEGON [PENTAZOCINE] [Concomitant]
     Active Substance: PENTAZOCINE
     Dosage: 7.5 MG, QD
     Route: 065
     Dates: start: 20160902, end: 20160902
  215. ELNEOPA NO.2 [Concomitant]
     Active Substance: AMINO ACIDS\DEXTROSE\ELECTROLYTES NOS\MINERALS\VITAMINS
     Dosage: 1500 ML, BID
     Route: 065
     Dates: start: 20160906, end: 20160906
  216. ELNEOPA NO.2 [Concomitant]
     Active Substance: AMINO ACIDS\DEXTROSE\ELECTROLYTES NOS\MINERALS\VITAMINS
     Dosage: 1500 ML, QD
     Route: 065
     Dates: start: 20160907, end: 20160920
  217. NEO MINOPHAGEN C [CYSTEINE HYDROCHLORIDE;GLYCINE;GLYCYRRHIZIC ACID, AM [Concomitant]
     Dosage: 60 ML
     Route: 065
     Dates: start: 20160814, end: 20160920
  218. NORADRENALINE [NOREPINEPHRINE] [Concomitant]
     Active Substance: NOREPINEPHRINE
     Dosage: 2 MG, TID
     Route: 065
     Dates: start: 20160919, end: 20160919
  219. POTELIGEO [Suspect]
     Active Substance: MOGAMULIZUMAB-KPKC
     Dosage: 55 MG, QD
     Route: 041
     Dates: start: 20160427, end: 20160427
  220. POLARAMINE [Concomitant]
     Active Substance: DEXCHLORPHENIRAMINE MALEATE
     Dosage: 2 MG, QD
     Route: 048
     Dates: start: 20160427, end: 20160503
  221. SAXIZON [Concomitant]
     Active Substance: HYDROCORTISONE SODIUM SUCCINATE
     Dosage: 100 MG, QD
     Route: 065
     Dates: start: 20160625, end: 20160629
  222. SAXIZON [Concomitant]
     Active Substance: HYDROCORTISONE SODIUM SUCCINATE
     Dosage: 100 MG, QD
     Route: 065
     Dates: start: 20160721, end: 20160722
  223. SAXIZON [Concomitant]
     Active Substance: HYDROCORTISONE SODIUM SUCCINATE
     Dosage: 100 MG, QD
     Route: 065
     Dates: start: 20160803, end: 20160804
  224. SAXIZON [Concomitant]
     Active Substance: HYDROCORTISONE SODIUM SUCCINATE
     Dosage: 100 MG, QD
     Route: 065
     Dates: start: 20160813, end: 20160813
  225. SAXIZON [Concomitant]
     Active Substance: HYDROCORTISONE SODIUM SUCCINATE
     Dosage: 100 MG, QD
     Route: 065
     Dates: start: 20160917, end: 20160917
  226. RASURITEK [Concomitant]
     Active Substance: RASBURICASE
     Dosage: 7.5 MG, QD
     Route: 065
     Dates: start: 20160427, end: 20160427
  227. HEPARIN NA LOCK [Concomitant]
     Active Substance: HEPARIN SODIUM
     Dosage: 30 ML, BID
     Route: 065
     Dates: start: 20160502, end: 20160502
  228. HEPARIN NA LOCK [Concomitant]
     Active Substance: HEPARIN SODIUM
     Dosage: 10 ML, TID
     Route: 065
     Dates: start: 20160606, end: 20160614
  229. HEPARIN NA LOCK [Concomitant]
     Active Substance: HEPARIN SODIUM
     Dosage: 10 ML, QID
     Route: 065
     Dates: start: 20160615, end: 20160616
  230. HEPARIN NA LOCK [Concomitant]
     Active Substance: HEPARIN SODIUM
     Dosage: UNK, 5X/DAY
     Route: 065
     Dates: start: 20160703, end: 20160703
  231. SOL-MELCORT [Concomitant]
     Active Substance: METHYLPREDNISOLONE SODIUM SUCCINATE
     Dosage: 60 MG, BID
     Route: 065
     Dates: start: 20160627, end: 20160627
  232. PREDONINE [Concomitant]
     Active Substance: PREDNISOLONE
     Dosage: 120 MG, 1X/WEEK
     Route: 048
     Dates: start: 20160505, end: 20160512
  233. NEXIUM [Concomitant]
     Active Substance: ESOMEPRAZOLE MAGNESIUM
     Dosage: 20 MG, QD
     Route: 048
     Dates: start: 20160510, end: 20160622
  234. BFLUID [Concomitant]
     Active Substance: AMINO ACIDS\DEXTROSE\ELECTROLYTES NOS\VITAMINS
     Dosage: 1000 ML, QD
     Route: 065
     Dates: start: 20160519, end: 20160522
  235. MAGMITT [Concomitant]
     Active Substance: MAGNESIUM OXIDE
     Dosage: 500 MG, PRN
     Route: 048
     Dates: start: 20160608
  236. DISTILLED WATER [WATER FOR INJECTION] [Concomitant]
     Dosage: 20 ML, QD
     Route: 065
     Dates: start: 20160710, end: 20160710
  237. DISTILLED WATER [WATER FOR INJECTION] [Concomitant]
     Dosage: UNK UNK, QD
     Route: 065
     Dates: start: 20160810, end: 20160831
  238. POLARAMINE [Concomitant]
     Active Substance: DEXCHLORPHENIRAMINE MALEATE
     Dosage: UNK UNK, QD
     Route: 065
     Dates: start: 20160701, end: 20160702
  239. POLARAMINE [Concomitant]
     Active Substance: DEXCHLORPHENIRAMINE MALEATE
     Dosage: UNK UNK, QD
     Route: 065
     Dates: start: 20160727, end: 20160810
  240. METHOTREXATE. [Concomitant]
     Active Substance: METHOTREXATE
     Dosage: 15 MG, QD
     Route: 065
     Dates: start: 20160614, end: 20160614
  241. MEROPENEM [MEROPENEM TRIHYDRATE] [Concomitant]
     Active Substance: MEROPENEM
     Dosage: 1000 MG, BID
     Route: 065
     Dates: start: 20160615, end: 20160615
  242. MEROPENEM [MEROPENEM TRIHYDRATE] [Concomitant]
     Active Substance: MEROPENEM
     Dosage: 1000 MG, QD
     Route: 065
     Dates: start: 20160727, end: 20160727
  243. LASIX [Concomitant]
     Active Substance: FUROSEMIDE
     Dosage: 40 MG, QD
     Route: 065
     Dates: start: 20160710, end: 20160710
  244. LASIX [Concomitant]
     Active Substance: FUROSEMIDE
     Dosage: 20 MG, QD
     Route: 065
     Dates: start: 20160902, end: 20160903
  245. ACELIO [Concomitant]
     Active Substance: ACETAMINOPHEN
     Dosage: 500 MG, TID
     Route: 065
     Dates: start: 20160623, end: 20160623
  246. XYLOCAINE [Concomitant]
     Active Substance: LIDOCAINE HYDROCHLORIDE
     Dosage: 20 ML, QD
     Route: 065
     Dates: start: 20160628, end: 20160628
  247. HUMACART R [Concomitant]
     Active Substance: INSULIN HUMAN
     Dosage: UNK UNK, TID
     Route: 065
     Dates: start: 20160920, end: 20160920
  248. THYMOGLOBULINE [Concomitant]
     Active Substance: LAPINE T-LYMPHOCYTE IMMUNE GLOBULIN
     Dosage: 55 MG, QD
     Route: 065
     Dates: start: 20160803, end: 20160804
  249. THYMOGLOBULINE [Concomitant]
     Active Substance: LAPINE T-LYMPHOCYTE IMMUNE GLOBULIN
     Dosage: 110 MG, QD
     Route: 065
     Dates: start: 20160904, end: 20160904
  250. MYSER [DIFLUPREDNATE] [Concomitant]
     Dosage: 5 G
     Route: 061
     Dates: start: 20160726, end: 20160726
  251. MYSER [DIFLUPREDNATE] [Concomitant]
     Dosage: 10 G
     Route: 061
     Dates: start: 20160817, end: 20160817
  252. HEPARINOID [Concomitant]
     Active Substance: CHONDROITIN SULFATE (BOVINE)
     Dosage: UNK
     Route: 061
     Dates: start: 20160808, end: 20160808
  253. SOSEGON [PENTAZOCINE] [Concomitant]
     Active Substance: PENTAZOCINE
     Dosage: 7.5 MG, QD
     Route: 065
     Dates: start: 20160826, end: 20160826
  254. TRANEXAMIC ACID. [Concomitant]
     Active Substance: TRANEXAMIC ACID
     Dosage: 1000 MG, QD
     Route: 065
     Dates: start: 20160904, end: 20160905
  255. NICARDIPINE HYDROCHLORIDE. [Concomitant]
     Active Substance: NICARDIPINE HYDROCHLORIDE
     Dosage: 50 MG, QD
     Route: 065
     Dates: start: 20160831, end: 20160901
  256. ELNEOPA NO.2 [Concomitant]
     Active Substance: AMINO ACIDS\DEXTROSE\ELECTROLYTES NOS\MINERALS\VITAMINS
     Dosage: 1500 ML, QD
     Route: 065
     Dates: start: 20160824, end: 20160905
  257. MUCOSTA [Concomitant]
     Active Substance: REBAMIPIDE
     Dosage: UNK, QID
     Route: 047
     Dates: start: 20160901, end: 20160901
  258. TERIBONE [Concomitant]
     Active Substance: TERIPARATIDE ACETATE
     Dosage: UNK UNK, 1X/WEEK
     Route: 065
     Dates: start: 20160909, end: 20160916
  259. NORADRENALINE [NOREPINEPHRINE] [Concomitant]
     Active Substance: NOREPINEPHRINE
     Dosage: 2 MG, QD
     Route: 065
     Dates: start: 20160922, end: 20160922
  260. FULCALIQ [Concomitant]
     Active Substance: AMINO ACIDS\CARBOHYDRATES\ELECTROLYTES NOS\VITAMINS
     Dosage: 1003 ML, QD
     Route: 065
     Dates: start: 20160921, end: 20160921
  261. PRECEDEX [Concomitant]
     Active Substance: DEXMEDETOMIDINE HYDROCHLORIDE
     Dosage: 200 UG, QD
     Route: 065
     Dates: start: 20160922, end: 20160922
  262. CALONAL [Concomitant]
     Active Substance: ACETAMINOPHEN
     Dosage: 400 MG, 1X/WEEK
     Route: 048
     Dates: start: 20160427, end: 20160503
  263. SAXIZON [Concomitant]
     Active Substance: HYDROCORTISONE SODIUM SUCCINATE
     Dosage: 100 MG, QD
     Route: 065
     Dates: start: 20160605, end: 20160605
  264. SAXIZON [Concomitant]
     Active Substance: HYDROCORTISONE SODIUM SUCCINATE
     Dosage: 100 MG, QD
     Route: 065
     Dates: start: 20160613, end: 20160613
  265. SOLDEM 1 [Concomitant]
     Active Substance: DEXTROSE\SODIUM CHLORIDE\SODIUM LACTATE
     Dosage: 500 ML, QD
     Route: 065
     Dates: start: 20160921, end: 20160921
  266. HEPARIN NA LOCK [Concomitant]
     Active Substance: HEPARIN SODIUM
     Dosage: 10 ML, TID
     Route: 065
     Dates: start: 20160503, end: 20160512
  267. HEPARIN NA LOCK [Concomitant]
     Active Substance: HEPARIN SODIUM
     Dosage: 10 ML, QID
     Route: 065
     Dates: start: 20160525, end: 20160525
  268. HEPARIN NA LOCK [Concomitant]
     Active Substance: HEPARIN SODIUM
     Dosage: UNK UNK, QID
     Route: 065
     Dates: start: 20160628, end: 20160701
  269. SOL-MELCORT [Concomitant]
     Active Substance: METHYLPREDNISOLONE SODIUM SUCCINATE
     Dosage: UNK
     Route: 065
     Dates: start: 20160708, end: 20160710
  270. SOLDEM 3A [Concomitant]
     Active Substance: CARBOHYDRATES\POTASSIUM CHLORIDE\SODIUM CHLORIDE\SODIUM LACTATE
     Dosage: 1000 ML, QD
     Route: 065
     Dates: start: 20160731, end: 20160806
  271. SOLDEM 3A [Concomitant]
     Active Substance: CARBOHYDRATES\POTASSIUM CHLORIDE\SODIUM CHLORIDE\SODIUM LACTATE
     Dosage: 1000 ML, QD
     Route: 065
     Dates: start: 20160906, end: 20160920
  272. GLUCOSE [Concomitant]
     Active Substance: DEXTROSE
     Dosage: 100 ML, QD
     Route: 065
     Dates: start: 20160702, end: 20160709
  273. AZUNOL GARGLE LIQUID [Concomitant]
     Dosage: UNK
     Dates: start: 20160519, end: 20160519
  274. DISTILLED WATER [WATER FOR INJECTION] [Concomitant]
     Dosage: UNK UNK, QD
     Route: 065
     Dates: start: 20160620, end: 20160628
  275. DISTILLED WATER [WATER FOR INJECTION] [Concomitant]
     Dosage: 20 ML, QD
     Route: 065
     Dates: start: 20160721, end: 20160723
  276. DISTILLED WATER [WATER FOR INJECTION] [Concomitant]
     Dosage: UNK UNK, QD
     Route: 065
     Dates: start: 20160728, end: 20160731
  277. DISTILLED WATER [WATER FOR INJECTION] [Concomitant]
     Dosage: UNK, QD
     Route: 065
     Dates: start: 20160913, end: 20160921
  278. EMEND [Concomitant]
     Active Substance: APREPITANT
     Dosage: UNK, QD
     Route: 048
     Dates: start: 20160609, end: 20160611
  279. POLARAMINE [Concomitant]
     Active Substance: DEXCHLORPHENIRAMINE MALEATE
     Dosage: UNK UNK, QD
     Route: 065
     Dates: start: 20160721, end: 20160722
  280. METHOTREXATE. [Concomitant]
     Active Substance: METHOTREXATE
     Dosage: 10 MG, EVERY 3 DAYS
     Route: 065
     Dates: start: 20160616, end: 20160619
  281. MEROPENEM [MEROPENEM TRIHYDRATE] [Concomitant]
     Active Substance: MEROPENEM
     Dosage: 1000 MG, QID
     Route: 065
     Dates: start: 20160701, end: 20160701
  282. MEROPENEM [MEROPENEM TRIHYDRATE] [Concomitant]
     Active Substance: MEROPENEM
     Dosage: 1000 MG, TID
     Route: 065
     Dates: start: 20160702, end: 20160726
  283. LASIX [Concomitant]
     Active Substance: FUROSEMIDE
     Dosage: 10 MG, QD
     Route: 065
     Dates: start: 20160905, end: 20160905
  284. MAGNESIUM SULFATE. [Concomitant]
     Active Substance: MAGNESIUM SULFATE
     Dosage: 20 ML, QD
     Route: 065
     Dates: start: 20160817, end: 20160821
  285. OMEPRAZOLE. [Concomitant]
     Active Substance: OMEPRAZOLE
     Dosage: 20 MG, QID
     Route: 065
     Dates: start: 20160629, end: 20160630
  286. OMEPRAZOLE. [Concomitant]
     Active Substance: OMEPRAZOLE
     Dosage: 20 MG, BID
     Route: 065
     Dates: start: 20160702, end: 20160919
  287. NEUTROGIN [Concomitant]
     Active Substance: LENOGRASTIM
     Dosage: 250 UG, QD
     Route: 065
     Dates: start: 20160820, end: 20160821
  288. VANCOMYCIN [Concomitant]
     Active Substance: VANCOMYCIN
     Dosage: 1000 MG, QD
     Route: 065
     Dates: start: 20160620, end: 20160620
  289. ACELIO [Concomitant]
     Active Substance: ACETAMINOPHEN
     Dosage: 1000 MG, QD
     Route: 065
     Dates: start: 20160717, end: 20160717
  290. ACELIO [Concomitant]
     Active Substance: ACETAMINOPHEN
     Dosage: 500 MG, QD
     Route: 065
     Dates: start: 20160819, end: 20160819
  291. ACELIO [Concomitant]
     Active Substance: ACETAMINOPHEN
     Dosage: 1500 MG
     Route: 065
     Dates: start: 20160916, end: 20160916
  292. ALBUMIN [Concomitant]
     Active Substance: ALBUMIN HUMAN
     Dosage: 100 ML, QD
     Route: 065
     Dates: start: 20160627, end: 20160627
  293. ALBUMIN [Concomitant]
     Active Substance: ALBUMIN HUMAN
     Dosage: 100 ML, QD
     Route: 065
     Dates: start: 20160714, end: 20160714
  294. ALBUMIN [Concomitant]
     Active Substance: ALBUMIN HUMAN
     Dosage: 50 ML, QD
     Route: 065
     Dates: start: 20160721, end: 20160722
  295. ALBUMIN [Concomitant]
     Active Substance: ALBUMIN HUMAN
     Dosage: 100 ML, QD
     Route: 065
     Dates: start: 20160723, end: 20160723
  296. KCL [Concomitant]
     Active Substance: POTASSIUM CHLORIDE
     Dosage: 30 ML, QD
     Route: 065
     Dates: start: 20160817, end: 20160821
  297. KCL [Concomitant]
     Active Substance: POTASSIUM CHLORIDE
     Dosage: 20 ML, QD
     Route: 065
     Dates: start: 20160827, end: 20160827
  298. HUMACART R [Concomitant]
     Active Substance: INSULIN HUMAN
     Dosage: UNK UNK, TID
     Route: 065
     Dates: start: 20160630, end: 20160905
  299. HUMACART R [Concomitant]
     Active Substance: INSULIN HUMAN
     Dosage: UNK UNK, TID
     Route: 065
     Dates: start: 20160919, end: 20160919
  300. FOSCAVIR [Concomitant]
     Active Substance: FOSCARNET SODIUM
     Dosage: 4.8 G, BID
     Route: 065
     Dates: start: 20160628, end: 20160630
  301. FOSCAVIR [Concomitant]
     Active Substance: FOSCARNET SODIUM
     Dosage: 2.4 G, QD
     Route: 065
     Dates: start: 20160705, end: 20160730
  302. DIBASIC POTASSIUM PHOSPHATE [Concomitant]
     Active Substance: POTASSIUM PHOSPHATE, DIBASIC
     Dosage: 20 ML, BID
     Route: 065
     Dates: start: 20160627, end: 20160627
  303. THYMOGLOBULINE [Concomitant]
     Active Substance: LAPINE T-LYMPHOCYTE IMMUNE GLOBULIN
     Dosage: 110 MG, QD
     Route: 065
     Dates: start: 20160813, end: 20160813
  304. SANDOSTATIN [Concomitant]
     Active Substance: OCTREOTIDE ACETATE
     Dosage: 300 UG, QD
     Route: 065
     Dates: start: 20160711, end: 20160809
  305. HEPAFLUSH [Concomitant]
     Active Substance: HEPARIN SODIUM
     Dosage: 10 ML, QD
     Route: 065
     Dates: start: 20160712, end: 20160712
  306. SOLACET F [Concomitant]
     Active Substance: CALCIUM CHLORIDE\POTASSIUM CHLORIDE\SODIUM ACETATE\SODIUM CHLORIDE
     Dosage: 500 ML, QD
     Route: 065
     Dates: start: 20160708, end: 20160710
  307. MYSER [DIFLUPREDNATE] [Concomitant]
     Dosage: 10 G
     Route: 061
     Dates: start: 20160808, end: 20160808
  308. KENKETU GLOVENIN-I [Concomitant]
     Active Substance: HUMAN IMMUNOGLOBULIN G
     Dosage: 5000 MG
     Route: 065
     Dates: start: 20160720, end: 20160720
  309. MAXIPIME [Concomitant]
     Active Substance: CEFEPIME HYDROCHLORIDE
     Dosage: 1000 MG, QD
     Route: 065
     Dates: start: 20160727, end: 20160727
  310. MAXIPIME [Concomitant]
     Active Substance: CEFEPIME HYDROCHLORIDE
     Dosage: 1000 MG, BID
     Route: 065
     Dates: start: 20160728, end: 20160807
  311. HYALEIN [Concomitant]
     Active Substance: HYALURONATE SODIUM
     Dosage: UNK UNK, QID
     Route: 047
     Dates: start: 20160802, end: 20160802
  312. DENOSINE [GANCICLOVIR] [Concomitant]
     Active Substance: GANCICLOVIR
     Dosage: 65 MG, QD
     Route: 065
     Dates: start: 20160810, end: 20160816
  313. NICARDIPINE HYDROCHLORIDE. [Concomitant]
     Active Substance: NICARDIPINE HYDROCHLORIDE
     Dosage: 50 MG, QD
     Route: 065
     Dates: start: 20160805, end: 20160808
  314. MULTAMIN [ASCORBIC ACID;BIOTIN;COLECALCIFEROL;CYANOCOBALAMIN;FOLIC ACI [Concomitant]
     Dosage: UNK UNK, QD
     Route: 065
     Dates: start: 20160808, end: 20160810
  315. POLYGLOBIN [Concomitant]
     Active Substance: HUMAN IMMUNOGLOBULIN G
     Dosage: 5000 MG, QD
     Route: 065
     Dates: start: 20160815, end: 20160817
  316. INTRALIPOS [Concomitant]
     Active Substance: SOYBEAN OIL
     Dosage: 50 ML
     Route: 065
     Dates: start: 20160824, end: 20160920
  317. MUCOSTA [Concomitant]
     Active Substance: REBAMIPIDE
     Dosage: UNK, QOD
     Route: 047
     Dates: start: 20160916, end: 20160918
  318. ONOACT [Concomitant]
     Active Substance: LANDIOLOL HYDROCHLORIDE
     Dosage: 250 MG, QID
     Route: 065
     Dates: start: 20160920, end: 20160920
  319. FEBURIC [Concomitant]
     Active Substance: FEBUXOSTAT
     Dosage: 40 MG, QD
     Route: 048
     Dates: start: 20160428, end: 20160503
  320. ISOTONIC SODIUM CHLORIDE SOLUTION [Concomitant]
     Active Substance: SODIUM CHLORIDE
     Dosage: 100 ML, QD
     Route: 065
     Dates: start: 20160428, end: 20160428
  321. ISOTONIC SODIUM CHLORIDE SOLUTION [Concomitant]
     Active Substance: SODIUM CHLORIDE
     Dosage: 100 ML, QD
     Route: 065
     Dates: start: 20160504, end: 20160504
  322. SAXIZON [Concomitant]
     Active Substance: HYDROCORTISONE SODIUM SUCCINATE
     Dosage: 100 MG, QD
     Route: 065
     Dates: start: 20160801, end: 20160801
  323. SOLDEM 1 [Concomitant]
     Active Substance: DEXTROSE\SODIUM CHLORIDE\SODIUM LACTATE
     Dosage: 1500 ML, QD
     Route: 065
     Dates: start: 20160714, end: 20160729
  324. SOLDEM 1 [Concomitant]
     Active Substance: DEXTROSE\SODIUM CHLORIDE\SODIUM LACTATE
     Dosage: 500 ML, QD
     Route: 065
     Dates: start: 20160904, end: 20160906
  325. HEPARIN NA LOCK [Concomitant]
     Active Substance: HEPARIN SODIUM
     Dosage: 10 ML, TID
     Route: 065
     Dates: start: 20160526, end: 20160527
  326. SOL-MELCORT [Concomitant]
     Active Substance: METHYLPREDNISOLONE SODIUM SUCCINATE
     Dosage: 110 MG, QD
     Route: 065
     Dates: start: 20160702, end: 20160707
  327. FLUCONAZOLE. [Concomitant]
     Active Substance: FLUCONAZOLE
     Dosage: 200 MG, QD
     Route: 048
     Dates: start: 20160510, end: 20160518
  328. DAIPHEN [Concomitant]
     Active Substance: SULFAMETHOXAZOLE\TRIMETHOPRIM
     Dosage: 1 DF, QD
     Route: 048
     Dates: start: 20160510, end: 20160601
  329. GLUCOSE [Concomitant]
     Active Substance: DEXTROSE
     Dosage: 100 ML, QD
     Route: 065
     Dates: start: 20160623, end: 20160627
  330. DISTILLED WATER [WATER FOR INJECTION] [Concomitant]
     Dosage: 20 ML, QD
     Route: 065
     Dates: start: 20160706, end: 20160706
  331. DISTILLED WATER [WATER FOR INJECTION] [Concomitant]
     Dosage: UNK UNK, QD
     Route: 065
     Dates: start: 20160803, end: 20160805
  332. POLARAMINE [Concomitant]
     Active Substance: DEXCHLORPHENIRAMINE MALEATE
     Dosage: 5 MG, QD
     Route: 065
     Dates: start: 20160610, end: 20160610
  333. POLARAMINE [Concomitant]
     Active Substance: DEXCHLORPHENIRAMINE MALEATE
     Dosage: 5 MG, QOD
     Route: 065
     Dates: start: 20160708, end: 20160710
  334. POLARAMINE [Concomitant]
     Active Substance: DEXCHLORPHENIRAMINE MALEATE
     Dosage: UNK UNK, QD
     Route: 065
     Dates: start: 20160912, end: 20160916
  335. LASIX [Concomitant]
     Active Substance: FUROSEMIDE
     Dosage: 20 MG, QD
     Route: 065
     Dates: start: 20160729, end: 20160729
  336. LASIX [Concomitant]
     Active Substance: FUROSEMIDE
     Dosage: 20 MG, QD
     Route: 065
     Dates: start: 20160822, end: 20160822
  337. DEXART [Concomitant]
     Active Substance: DEXAMETHASONE SODIUM PHOSPHATE
     Dosage: UNK
     Route: 065
     Dates: start: 20160610, end: 20160610
  338. PROGRAF [Concomitant]
     Active Substance: TACROLIMUS
     Dosage: UNK
     Route: 065
     Dates: start: 20160612, end: 20160802
  339. OMEPRAZOLE. [Concomitant]
     Active Substance: OMEPRAZOLE
     Dosage: 20 MG, BID
     Route: 065
     Dates: start: 20160921, end: 20160921
  340. NEUTROGIN [Concomitant]
     Active Substance: LENOGRASTIM
     Dosage: 250 UG, QD
     Route: 065
     Dates: start: 20160618, end: 20160626
  341. NEUTROGIN [Concomitant]
     Active Substance: LENOGRASTIM
     Dosage: 250 UG, BID
     Route: 065
     Dates: start: 20160819, end: 20160819
  342. NEUTROGIN [Concomitant]
     Active Substance: LENOGRASTIM
     Dosage: 250 UG, QD
     Route: 065
     Dates: start: 20160912, end: 20160912
  343. VANCOMYCIN [Concomitant]
     Active Substance: VANCOMYCIN
     Dosage: 1000 MG, BID
     Route: 065
     Dates: start: 20160621, end: 20160626
  344. VICCLOX [ACICLOVIR] [Concomitant]
     Dosage: 250 MG, TID
     Route: 065
     Dates: start: 20160620, end: 20160620
  345. KCL [Concomitant]
     Active Substance: POTASSIUM CHLORIDE
     Dosage: UNK
     Route: 065
     Dates: start: 20160627, end: 20160708
  346. FUNGUARD [Concomitant]
     Active Substance: MICAFUNGIN SODIUM
     Dosage: 150 MG, BID
     Route: 065
     Dates: start: 20160628, end: 20160630
  347. HANP [Concomitant]
     Active Substance: CARPERITIDE
     Dosage: 2000 UG, QD
     Route: 065
     Dates: start: 20160702, end: 20160709
  348. HUMACART R [Concomitant]
     Active Substance: INSULIN HUMAN
     Dosage: UNK UNK, TID
     Route: 065
     Dates: start: 20160906, end: 20160906
  349. HUMACART R [Concomitant]
     Active Substance: INSULIN HUMAN
     Dosage: UNK UNK, TID
     Route: 065
     Dates: start: 20160907, end: 20160918
  350. FOSCAVIR [Concomitant]
     Active Substance: FOSCARNET SODIUM
     Dosage: 4.8 G, QD
     Route: 065
     Dates: start: 20160627, end: 20160627
  351. FOSCAVIR [Concomitant]
     Active Substance: FOSCARNET SODIUM
     Dosage: 2.5 G, QOD
     Route: 065
     Dates: start: 20160914, end: 20160918
  352. FOSCAVIR [Concomitant]
     Active Substance: FOSCARNET SODIUM
     Dosage: 2.5 G, BID
     Route: 065
     Dates: start: 20160920, end: 20160920
  353. THYMOGLOBULINE [Concomitant]
     Active Substance: LAPINE T-LYMPHOCYTE IMMUNE GLOBULIN
     Dosage: 57 MG, BID
     Route: 065
     Dates: start: 20160629, end: 20160629
  354. ZINC OXIDE. [Concomitant]
     Active Substance: ZINC OXIDE
     Dosage: 15 G, QOD
     Route: 061
     Dates: start: 20160801, end: 20160803
  355. MOVIPREP [Concomitant]
     Active Substance: ASCORBIC ACID\POLYETHYLENE GLYCOL 3350\POTASSIUM CHLORIDE\SODIUM ASCORBATE\SODIUM CHLORIDE\SODIUM SULFATE
     Dosage: UNK
     Route: 048
     Dates: start: 20160719, end: 20160719
  356. HEPAFLUSH [Concomitant]
     Active Substance: HEPARIN SODIUM
     Dosage: 10 ML, QD
     Route: 065
     Dates: start: 20160811, end: 20160816
  357. MYSER [DIFLUPREDNATE] [Concomitant]
     Dosage: 3 G
     Route: 061
     Dates: start: 20160720, end: 20160720
  358. MYSER [DIFLUPREDNATE] [Concomitant]
     Dosage: 10 G
     Route: 061
     Dates: start: 20160824, end: 20160824
  359. LOCOID [Concomitant]
     Active Substance: HYDROCORTISONE BUTYRATE
     Dosage: 3 G
     Route: 061
     Dates: start: 20160724, end: 20160724
  360. LOCOID [Concomitant]
     Active Substance: HYDROCORTISONE BUTYRATE
     Dosage: 5 G
     Route: 061
     Dates: start: 20160726, end: 20160726
  361. MAXIPIME [Concomitant]
     Active Substance: CEFEPIME HYDROCHLORIDE
     Dosage: 500 MG, QD
     Route: 065
     Dates: start: 20160809, end: 20160814
  362. EKSALB [Concomitant]
     Dosage: 15 G, QOD
     Route: 061
     Dates: start: 20160801, end: 20160803
  363. CRAVIT [Concomitant]
     Active Substance: LEVOFLOXACIN
     Dosage: UNK
     Route: 047
     Dates: start: 20160730, end: 20160730
  364. DERMOVATE [Concomitant]
     Active Substance: CLOBETASOL
     Dosage: 10 G, QOD
     Route: 047
     Dates: start: 20160801, end: 20160803
  365. GATIFLO [Concomitant]
     Active Substance: GATIFLOXACIN
     Dosage: UNK
     Route: 047
     Dates: start: 20160802, end: 20160802
  366. LOXOPROFEN SODIUM HYDRATE [Concomitant]
     Active Substance: LOXOPROFEN SODIUM DIHYDRATE
     Dosage: UNK
     Dates: start: 20160728, end: 20160728
  367. HEPARINOID [Concomitant]
     Active Substance: CHONDROITIN SULFATE (BOVINE)
     Dosage: UNK
     Route: 061
     Dates: start: 20160801, end: 20160803
  368. SOSEGON [PENTAZOCINE] [Concomitant]
     Active Substance: PENTAZOCINE
     Dosage: 7.5 MG, QD
     Route: 065
     Dates: start: 20160808, end: 20160808
  369. TRANEXAMIC ACID. [Concomitant]
     Active Substance: TRANEXAMIC ACID
     Dosage: 1000 MG, BID
     Route: 065
     Dates: start: 20160728, end: 20160728
  370. TRANEXAMIC ACID. [Concomitant]
     Active Substance: TRANEXAMIC ACID
     Dosage: 1000 MG, BID
     Route: 065
     Dates: start: 20160906, end: 20160906
  371. NICARDIPINE HYDROCHLORIDE. [Concomitant]
     Active Substance: NICARDIPINE HYDROCHLORIDE
     Dosage: 50 MG, QD
     Route: 065
     Dates: start: 20160903, end: 20160920
  372. NEOAMIYU [Concomitant]
     Active Substance: AMINO ACIDS, SOURCE UNSPECIFIED
     Dosage: 200 ML, QD
     Route: 065
     Dates: start: 20160808, end: 20160810
  373. MUCOSTA [Concomitant]
     Active Substance: REBAMIPIDE
     Dosage: UNK, QID
     Route: 047
     Dates: start: 20160825, end: 20160825
  374. MUCOSTA [Concomitant]
     Active Substance: REBAMIPIDE
     Dosage: UNK, QOD
     Route: 047
     Dates: start: 20160921, end: 20160921
  375. TEICOPLANIN [Concomitant]
     Active Substance: TEICOPLANIN
     Dosage: 400 MG, QD
     Route: 065
     Dates: start: 20160901, end: 20160902
  376. FULCALIQ [Concomitant]
     Active Substance: AMINO ACIDS\CARBOHYDRATES\ELECTROLYTES NOS\VITAMINS
     Dosage: 1003 ML, BID
     Route: 065
     Dates: start: 20160919, end: 20160920
  377. ISOTONIC SODIUM CHLORIDE SOLUTION [Concomitant]
     Active Substance: SODIUM CHLORIDE
     Dosage: 20 ML, QD
     Route: 065
     Dates: start: 20160427, end: 20160427
  378. SAXIZON [Concomitant]
     Active Substance: HYDROCORTISONE SODIUM SUCCINATE
     Dosage: 100 MG, QD
     Route: 065
     Dates: start: 20160505, end: 20160505
  379. SOLDEM 1 [Concomitant]
     Active Substance: DEXTROSE\SODIUM CHLORIDE\SODIUM LACTATE
     Dosage: 1000 ML, QD
     Route: 065
     Dates: start: 20160711, end: 20160713
  380. HEPARIN NA LOCK [Concomitant]
     Active Substance: HEPARIN SODIUM
     Dosage: 10 ML, QD
     Route: 065
     Dates: start: 20160427, end: 20160429
  381. HEPARIN NA LOCK [Concomitant]
     Active Substance: HEPARIN SODIUM
     Dosage: 10 ML, TID
     Route: 065
     Dates: start: 20160529, end: 20160604
  382. HEPARIN NA LOCK [Concomitant]
     Active Substance: HEPARIN SODIUM
     Dosage: 10 ML, QD
     Route: 065
     Dates: start: 20160810, end: 20160810
  383. HEPARIN NA LOCK [Concomitant]
     Active Substance: HEPARIN SODIUM
     Dosage: 20 ML, QD
     Route: 065
     Dates: start: 20160908, end: 20160908
  384. HEPARIN NA LOCK [Concomitant]
     Active Substance: HEPARIN SODIUM
     Dosage: UNK UNK, QD
     Route: 065
     Dates: start: 20160914, end: 20160915
  385. SOL-MELCORT [Concomitant]
     Active Substance: METHYLPREDNISOLONE SODIUM SUCCINATE
     Dosage: 125 MG, BID
     Route: 065
     Dates: start: 20160629, end: 20160701
  386. SOL-MELCORT [Concomitant]
     Active Substance: METHYLPREDNISOLONE SODIUM SUCCINATE
     Dosage: 1000 ML, QD
     Route: 065
     Dates: start: 20160905, end: 20160906
  387. SOL-MELCORT [Concomitant]
     Active Substance: METHYLPREDNISOLONE SODIUM SUCCINATE
     Dosage: 125 MG, BID
     Route: 065
     Dates: start: 20160920, end: 20160920
  388. WHITE PETROLATUM [Concomitant]
     Active Substance: PETROLATUM
     Dosage: 50 G
     Dates: start: 20160713, end: 20160713
  389. SOLDEM 3A [Concomitant]
     Active Substance: CARBOHYDRATES\POTASSIUM CHLORIDE\SODIUM CHLORIDE\SODIUM LACTATE
     Dosage: 500 ML, QD
     Route: 065
     Dates: start: 20160506, end: 20160506
  390. GLUCOSE [Concomitant]
     Active Substance: DEXTROSE
     Dosage: 250 ML, QD
     Route: 065
     Dates: start: 20160513, end: 20160513
  391. GLUCOSE [Concomitant]
     Active Substance: DEXTROSE
     Dosage: 100 ML, BID
     Route: 065
     Dates: start: 20160628, end: 20160701
  392. VFEND [Concomitant]
     Active Substance: VORICONAZOLE
     Dosage: 400 MG, BID
     Route: 048
     Dates: start: 20160519, end: 20160622
  393. AZUNOL GARGLE LIQUID [Concomitant]
     Dosage: UNK
     Dates: start: 20160607, end: 20160607
  394. AZUNOL GARGLE LIQUID [Concomitant]
     Dosage: UNK
     Dates: start: 20160615, end: 20160615
  395. BFLUID [Concomitant]
     Active Substance: AMINO ACIDS\DEXTROSE\ELECTROLYTES NOS\VITAMINS
     Dosage: 1500 ML
     Route: 065
     Dates: start: 20160614, end: 20160620
  396. URSODEOXYCHOLIC ACID [Concomitant]
     Active Substance: URSODIOL
     Dosage: 200 MG, 6X/DAY
     Route: 048
     Dates: start: 20160906, end: 20160906
  397. POLARAMINE [Concomitant]
     Active Substance: DEXCHLORPHENIRAMINE MALEATE
     Dosage: 5 MG, QD
     Route: 065
     Dates: start: 20160620, end: 20160620
  398. POLARAMINE [Concomitant]
     Active Substance: DEXCHLORPHENIRAMINE MALEATE
     Dosage: UNK UNK, QD
     Route: 065
     Dates: start: 20160812, end: 20160910
  399. MEROPENEM [MEROPENEM TRIHYDRATE] [Concomitant]
     Active Substance: MEROPENEM
     Dosage: 1000 MG, 6X/DAY
     Route: 065
     Dates: start: 20160629, end: 20160630
  400. LASIX [Concomitant]
     Active Substance: FUROSEMIDE
     Dosage: 10 MG, QD
     Route: 065
     Dates: start: 20160714, end: 20160714
  401. OMEPRAZOLE. [Concomitant]
     Active Substance: OMEPRAZOLE
     Dosage: 20 MG, TID
     Route: 065
     Dates: start: 20160701, end: 20160701
  402. NEUTROGIN [Concomitant]
     Active Substance: LENOGRASTIM
     Dosage: 250 UG, QD
     Route: 065
     Dates: start: 20160908, end: 20160908
  403. NEUTROGIN [Concomitant]
     Active Substance: LENOGRASTIM
     Dosage: 250 UG, QD
     Route: 065
     Dates: start: 20160914, end: 20160921
  404. ACELIO [Concomitant]
     Active Substance: ACETAMINOPHEN
     Dosage: 500 MG, QD
     Route: 065
     Dates: start: 20160621, end: 20160621
  405. ACELIO [Concomitant]
     Active Substance: ACETAMINOPHEN
     Dosage: 1000 MG, BID
     Route: 065
     Dates: start: 20160625, end: 20160625
  406. ACELIO [Concomitant]
     Active Substance: ACETAMINOPHEN
     Dosage: 500 MG, QD
     Route: 065
     Dates: start: 20160918, end: 20160919
  407. ALBUMIN [Concomitant]
     Active Substance: ALBUMIN HUMAN
     Dosage: 100 ML, QD
     Route: 065
     Dates: start: 20160710, end: 20160710
  408. ALBUMIN [Concomitant]
     Active Substance: ALBUMIN HUMAN
     Dosage: 100 ML, QD
     Route: 065
     Dates: start: 20160719, end: 20160719
  409. HANP [Concomitant]
     Active Substance: CARPERITIDE
     Dosage: 2000 UG, QD
     Route: 065
     Dates: start: 20160623, end: 20160627
  410. HUMACART R [Concomitant]
     Active Substance: INSULIN HUMAN
     Dosage: UNK UNK, TID
     Route: 065
     Dates: start: 20160628, end: 20160628
  411. VFEND [Concomitant]
     Active Substance: VORICONAZOLE
     Dosage: 200 MG, QD
     Route: 065
     Dates: start: 20160628, end: 20160628

REACTIONS (2)
  - Acute graft versus host disease [Recovering/Resolving]
  - Pulmonary mycosis [Fatal]

NARRATIVE: CASE EVENT DATE: 20160709
